FAERS Safety Report 7228159-1 (Version None)
Quarter: 2011Q1

REPORT INFORMATION
  Report Type: 
  Country: None (occurrence: None)
  Receive Date: 20110112
  Receipt Date: 20110112
  Transmission Date: 20110831
  Serious: Yes (Other)
  Sender: FDA-Public Use
  Company Number: None

PATIENT
  Age: 55 Year
  Sex: Male
  Weight: 74.8435 kg

DRUGS (1)
  1. ZICAM NO-DRIP NASAL GEL .5 FL OZ./15 ML ZICAM LLC / MATRIX INITIATIVES [Suspect]
     Indication: NASOPHARYNGITIS
     Dosage: ONE SQUIRT TWICE DAILY ONCE NASAL
     Route: 045
     Dates: start: 20101030, end: 20101030

REACTIONS (2)
  - AGEUSIA [None]
  - ANOSMIA [None]
